FAERS Safety Report 22635798 (Version 1)
Quarter: 2023Q2

REPORT INFORMATION
  Report Type: Report from Study
  Country: JP (occurrence: JP)
  Receive Date: 20230623
  Receipt Date: 20230623
  Transmission Date: 20230722
  Serious: Yes (Other)
  Sender: FDA-Public Use
  Company Number: JP-UCBSA-2023030713

PATIENT
  Age: 17 Year
  Sex: Male

DRUGS (2)
  1. LACOSAMIDE [Suspect]
     Active Substance: LACOSAMIDE
     Indication: Juvenile myoclonic epilepsy
     Dosage: 400 MILLIGRAM
  2. VALPROIC ACID [Concomitant]
     Active Substance: VALPROIC ACID
     Indication: Juvenile myoclonic epilepsy
     Dosage: 1000 MILLIGRAM

REACTIONS (1)
  - Myoclonic epilepsy [Recovered/Resolved]
